FAERS Safety Report 10176397 (Version 1)
Quarter: 2014Q2

REPORT INFORMATION
  Report Type: Spontaneous
  Country: CA (occurrence: CA)
  Receive Date: 20140516
  Receipt Date: 20140516
  Transmission Date: 20141212
  Serious: Yes (Other)
  Sender: FDA-Public Use
  Company Number: CHPA2014CA006602

PATIENT
  Age: 26 Year
  Sex: Female

DRUGS (3)
  1. HABITROL 14 MG [Suspect]
     Indication: SMOKING CESSATION THERAPY
     Dosage: 1 DF, QD
     Route: 062
     Dates: start: 20140402, end: 20140423
  2. TUMS [Concomitant]
  3. BUPROPION [Concomitant]

REACTIONS (8)
  - Hyperthyroidism [Not Recovered/Not Resolved]
  - Blood iron decreased [Not Recovered/Not Resolved]
  - Menorrhagia [Recovered/Resolved]
  - Libido decreased [Unknown]
  - Faeces discoloured [Not Recovered/Not Resolved]
  - Muscle spasms [Not Recovered/Not Resolved]
  - Diarrhoea [Not Recovered/Not Resolved]
  - Incorrect dose administered [Unknown]
